FAERS Safety Report 12915696 (Version 1)
Quarter: 2016Q4

REPORT INFORMATION
  Report Type: Spontaneous
  Country: US (occurrence: US)
  Receive Date: 20161103
  Receipt Date: 20161103
  Transmission Date: 20170207
  Serious: Yes (Hospitalization)
  Sender: FDA-Public Use
  Company Number: None

PATIENT
  Age: 19 Year
  Sex: Male
  Weight: 113.7 kg

DRUGS (7)
  1. METHOTREXATE. [Suspect]
     Active Substance: METHOTREXATE
     Dates: end: 20161017
  2. MITOXANTRONE HYDROCHLORIDE. [Suspect]
     Active Substance: MITOXANTRONE HYDROCHLORIDE
     Dates: end: 20161004
  3. CYTARABINE. [Suspect]
     Active Substance: CYTARABINE
     Dates: end: 20161017
  4. HYDROCORTISONE. [Suspect]
     Active Substance: HYDROCORTISONE
     Dates: end: 20161017
  5. DEXAMETHASONE. [Suspect]
     Active Substance: DEXAMETHASONE
     Dates: end: 20161021
  6. ONCASPAR [Suspect]
     Active Substance: PEGASPARGASE
     Dates: end: 20161019
  7. VINCRISTINE SULFATE. [Suspect]
     Active Substance: VINCRISTINE SULFATE
     Dates: end: 20161017

REACTIONS (12)
  - Staphylococcal infection [None]
  - Thrombocytopenia [None]
  - Septic shock [None]
  - Bacterial infection [None]
  - Ecchymosis [None]
  - Blood lactic acid increased [None]
  - Nausea [None]
  - Flank pain [None]
  - Hypotension [None]
  - Body temperature increased [None]
  - Neutropenia [None]
  - Abdominal pain [None]

NARRATIVE: CASE EVENT DATE: 20161022
